FAERS Safety Report 12005159 (Version 2)
Quarter: 2016Q1

REPORT INFORMATION
  Report Type: Spontaneous
  Country: JP (occurrence: JP)
  Receive Date: 20160204
  Receipt Date: 20160208
  Transmission Date: 20160526
  Serious: Yes (Hospitalization)
  Sender: FDA-Public Use
  Company Number: PHJP2016JP002203

PATIENT
  Sex: Female

DRUGS (1)
  1. AFINITOR [Suspect]
     Active Substance: EVEROLIMUS
     Indication: BREAST CANCER RECURRENT
     Dosage: 10 MG, QD
     Route: 048
     Dates: start: 201508, end: 201601

REACTIONS (4)
  - Malignant neoplasm progression [Unknown]
  - Blood lactate dehydrogenase increased [Recovered/Resolved]
  - Bile duct stenosis [Unknown]
  - Metastases to liver [Unknown]

NARRATIVE: CASE EVENT DATE: 201601
